FAERS Safety Report 25825942 (Version 5)
Quarter: 2025Q4

REPORT INFORMATION
  Report Type: Report from Study
  Country: US (occurrence: US)
  Receive Date: 20250919
  Receipt Date: 20251120
  Transmission Date: 20260118
  Serious: Yes (Hospitalization, Other)
  Sender: MALLINCKRODT
  Company Number: US-MALLINCKRODT-MNK202505645

PATIENT
  Sex: Female

DRUGS (2)
  1. CORTICOTROPIN [Suspect]
     Active Substance: CORTICOTROPIN
     Indication: Sarcoidosis
     Dosage: UNKNOWN
  2. CORTICOTROPIN [Suspect]
     Active Substance: CORTICOTROPIN
     Indication: Pulmonary sarcoidosis

REACTIONS (8)
  - Hospitalisation [Unknown]
  - Gastric ulcer [Unknown]
  - Gastrooesophageal reflux disease [Unknown]
  - Hernia [Unknown]
  - Nausea [Not Recovered/Not Resolved]
  - Sleep-related breathing disorder [Unknown]
  - Vomiting [Not Recovered/Not Resolved]
  - Decreased appetite [Unknown]
